FAERS Safety Report 4647715-8 (Version None)
Quarter: 2005Q2

REPORT INFORMATION
  Report Type: 
  Country: None (occurrence: None)
  Receive Date: 20050428
  Receipt Date: 20050307
  Transmission Date: 20051028
  Serious: Yes (Hospitalization)
  Sender: FDA-Public Use
  Company Number: CN-BRISTOL-MYERS SQUIBB COMPANY-12889242

PATIENT
  Age: 53 Year
  Sex: Male
  Weight: 65 kg

DRUGS (1)
  1. PRAVACHOL [Suspect]
     Indication: HYPERLIPIDAEMIA
     Dosage: DOSE REDUCED TO 10MG DAILY IN OCT-2004 DUE TO LIVER FUNCTION ABNORMAL.
     Route: 048
     Dates: start: 20041001, end: 20050101

REACTIONS (1)
  - CHOLECYSTITIS [None]
